FAERS Safety Report 24312048 (Version 3)
Quarter: 2024Q4

REPORT INFORMATION
  Report Type: Report from Study
  Country: CA (occurrence: CA)
  Receive Date: 20240912
  Receipt Date: 20241002
  Transmission Date: 20250114
  Serious: Yes (Hospitalization, Other)
  Sender: TAKEDA
  Company Number: CA-TAKEDA-2024TUS090217

PATIENT
  Sex: Female

DRUGS (2)
  1. VEDOLIZUMAB [Suspect]
     Active Substance: VEDOLIZUMAB
     Indication: Colitis ulcerative
     Dosage: 300 MILLIGRAM
     Route: 042
     Dates: start: 20240826
  2. VEDOLIZUMAB [Suspect]
     Active Substance: VEDOLIZUMAB
     Dosage: 300 MILLIGRAM
     Route: 042

REACTIONS (11)
  - Malaise [Unknown]
  - Blood blister [Unknown]
  - Intestinal obstruction [Unknown]
  - Skin lesion [Unknown]
  - Vomiting [Unknown]
  - Escherichia infection [Unknown]
  - Asthenia [Unknown]
  - Blood test abnormal [Unknown]
  - Colonoscopy abnormal [Unknown]
  - Night sweats [Unknown]
  - Rash [Unknown]
